FAERS Safety Report 5680367-7 (Version None)
Quarter: 2008Q1

REPORT INFORMATION
  Report Type: 
  Country: None (occurrence: None)
  Receive Date: 20080326
  Receipt Date: 20080319
  Transmission Date: 20080703
  Serious: Yes (Hospitalization)
  Sender: FDA-Public Use
  Company Number: JP-AVENTIS-200810923JP

PATIENT
  Age: 68 Year
  Sex: Male

DRUGS (4)
  1. DOCETAXEL [Suspect]
     Indication: OESOPHAGEAL CARCINOMA
     Route: 041
     Dates: start: 20070601
  2. TS-1 [Concomitant]
     Indication: OESOPHAGEAL CARCINOMA
     Dates: start: 20070601
  3. NEDAPLATIN [Concomitant]
     Indication: OESOPHAGEAL CARCINOMA
  4. FLUOROURACIL [Concomitant]
     Indication: OESOPHAGEAL CARCINOMA

REACTIONS (1)
  - GUILLAIN-BARRE SYNDROME [None]
